FAERS Safety Report 15756525 (Version 1)
Quarter: 2018Q4

REPORT INFORMATION
  Report Type: Spontaneous
  Country: US (occurrence: US)
  Receive Date: 20181224
  Receipt Date: 20181224
  Transmission Date: 20190205
  Serious: Yes (Other)
  Sender: FDA-Public Use
  Company Number: US-IPSEN BIOPHARMACEUTICALS, INC.-2018-19689

PATIENT
  Age: 66 Year
  Sex: Female

DRUGS (5)
  1. VIVELLE [Concomitant]
     Active Substance: ESTRADIOL
  2. ASPIRIN. [Concomitant]
     Active Substance: ASPIRIN
  3. MULTIVITAMIN [Concomitant]
     Active Substance: VITAMINS
  4. RESTYLANE [Concomitant]
     Active Substance: HYALURONIC ACID
     Dates: start: 2016
  5. DYSPORT [Suspect]
     Active Substance: ABOBOTULINUMTOXINA
     Indication: SKIN WRINKLING
     Dosage: 60 UNITS IN CROW^S FEET
     Route: 058
     Dates: start: 20181119

REACTIONS (2)
  - Conjunctival haemorrhage [Not Recovered/Not Resolved]
  - Upper respiratory tract infection [Recovered/Resolved]

NARRATIVE: CASE EVENT DATE: 201811
